FAERS Safety Report 19562060 (Version 1)
Quarter: 2021Q3

REPORT INFORMATION
  Report Type: Other
  Country: US (occurrence: US)
  Receive Date: 20210716
  Receipt Date: 20210716
  Transmission Date: 20211014
  Serious: Yes (Other)
  Sender: FDA-Public Use
  Company Number: US-ROCHE-2868735

PATIENT

DRUGS (18)
  1. RITUXIMAB. [Suspect]
     Active Substance: RITUXIMAB
     Indication: IMMUNOSUPPRESSION
     Route: 065
  2. GOLIMUMAB [Suspect]
     Active Substance: GOLIMUMAB
     Indication: IMMUNOSUPPRESSION
     Route: 065
  3. INFLIXIMAB [Suspect]
     Active Substance: INFLIXIMAB
     Indication: IMMUNOSUPPRESSION
     Route: 065
  4. UPADACITINIB [Suspect]
     Active Substance: UPADACITINIB
     Indication: IMMUNOSUPPRESSION
     Route: 065
  5. ETANERCEPT [Suspect]
     Active Substance: ETANERCEPT
     Indication: IMMUNOSUPPRESSION
     Route: 065
  6. SARILUMAB [Suspect]
     Active Substance: SARILUMAB
     Indication: IMMUNOSUPPRESSION
     Route: 065
  7. BARICITINIB. [Suspect]
     Active Substance: BARICITINIB
     Indication: IMMUNOSUPPRESSION
     Route: 065
  8. SULFASALAZINE. [Suspect]
     Active Substance: SULFASALAZINE
     Indication: IMMUNOSUPPRESSION
     Route: 065
  9. LEFLUNOMIDE. [Suspect]
     Active Substance: LEFLUNOMIDE
     Indication: IMMUNOSUPPRESSION
     Route: 065
  10. CERTOLIZUMAB [Suspect]
     Active Substance: CERTOLIZUMAB
     Indication: IMMUNOSUPPRESSION
     Route: 065
  11. TOFACITINIB [Suspect]
     Active Substance: TOFACITINIB
     Indication: IMMUNOSUPPRESSION
     Route: 065
  12. AZATHIOPRINE. [Suspect]
     Active Substance: AZATHIOPRINE
     Indication: IMMUNOSUPPRESSION
     Route: 065
  13. HYDROXYCHLOROQUINE [Suspect]
     Active Substance: HYDROXYCHLOROQUINE
     Indication: IMMUNOSUPPRESSION
     Route: 065
  14. ADALIMUMAB [Suspect]
     Active Substance: ADALIMUMAB
     Indication: IMMUNOSUPPRESSION
     Route: 065
  15. METHOTREXATE. [Suspect]
     Active Substance: METHOTREXATE
     Indication: IMMUNOSUPPRESSION
     Route: 065
  16. ANAKINRA [Suspect]
     Active Substance: ANAKINRA
     Indication: IMMUNOSUPPRESSION
     Route: 065
  17. ABATACEPT [Suspect]
     Active Substance: ABATACEPT
     Indication: IMMUNOSUPPRESSION
     Route: 065
  18. TOCILIZUMAB. [Suspect]
     Active Substance: TOCILIZUMAB
     Indication: IMMUNOSUPPRESSION
     Route: 065

REACTIONS (1)
  - Device related infection [Unknown]
